FAERS Safety Report 15748863 (Version 1)
Quarter: 2018Q4

REPORT INFORMATION
  Report Type: Spontaneous
  Country: US (occurrence: US)
  Receive Date: 20181221
  Receipt Date: 20181221
  Transmission Date: 20190205
  Serious: Yes (Hospitalization)
  Sender: FDA-Public Use
  Company Number: US-ASTRAZENECA-2018SF23579

PATIENT
  Age: 83 Year
  Sex: Male
  Weight: 88.5 kg

DRUGS (4)
  1. ESOMEPRAZOLE MAGNESIUM. [Suspect]
     Active Substance: ESOMEPRAZOLE MAGNESIUM
     Indication: GASTROOESOPHAGEAL REFLUX DISEASE
     Route: 048
     Dates: start: 2008
  2. SYMBICORT [Suspect]
     Active Substance: BUDESONIDE\FORMOTEROL FUMARATE DIHYDRATE
     Indication: ASTHMA
     Dosage: 160/4.5 MCG, TWO INHALATION TWICE A DAY
     Route: 055
     Dates: start: 2015
  3. ASTHMA MEDICINE [Concomitant]
     Indication: ASTHMA
  4. TOPROL XL [Suspect]
     Active Substance: METOPROLOL SUCCINATE
     Indication: COMPLICATION ASSOCIATED WITH DEVICE
     Route: 048

REACTIONS (7)
  - Intentional device misuse [Unknown]
  - Device issue [Unknown]
  - Malaise [Recovering/Resolving]
  - Transient ischaemic attack [Recovering/Resolving]
  - Off label use [Unknown]
  - Visual impairment [Not Recovered/Not Resolved]
  - Circumstance or information capable of leading to medication error [Unknown]

NARRATIVE: CASE EVENT DATE: 2017
